FAERS Safety Report 16263423 (Version 2)
Quarter: 2019Q2

REPORT INFORMATION
  Report Type: Report from Study
  Country: None (occurrence: US)
  Receive Date: 20190502
  Receipt Date: 20190620
  Transmission Date: 20190711
  Serious: Yes (Other)
  Sender: FDA-Public Use
  Company Number: US-ABBVIE-19K-163-2753446-00

PATIENT
  Age: 49 Year
  Sex: Female
  Weight: 118.04 kg

DRUGS (4)
  1. HUMIRA [Suspect]
     Active Substance: ADALIMUMAB
     Indication: HIDRADENITIS
     Route: 058
     Dates: start: 20190215, end: 20190215
  2. HUMIRA [Suspect]
     Active Substance: ADALIMUMAB
     Indication: RHEUMATOID ARTHRITIS
     Route: 058
  3. HUMIRA [Suspect]
     Active Substance: ADALIMUMAB
     Indication: RHEUMATOID ARTHRITIS
     Route: 058
     Dates: start: 2019, end: 2019
  4. HUMIRA [Suspect]
     Active Substance: ADALIMUMAB
     Indication: HIDRADENITIS
     Route: 058
     Dates: start: 20190305, end: 20190409

REACTIONS (14)
  - Heart rate increased [Recovering/Resolving]
  - Pain [Recovering/Resolving]
  - Dyspnoea [Recovering/Resolving]
  - Fatigue [Unknown]
  - Peripheral swelling [Recovered/Resolved]
  - Muscle spasms [Unknown]
  - Lupus-like syndrome [Recovering/Resolving]
  - Peripheral swelling [Recovering/Resolving]
  - Lethargy [Recovered/Resolved]
  - Swelling [Unknown]
  - Arthralgia [Unknown]
  - Butterfly rash [Recovered/Resolved]
  - Mobility decreased [Recovering/Resolving]
  - Pain in extremity [Unknown]

NARRATIVE: CASE EVENT DATE: 2019
